FAERS Safety Report 17551966 (Version 4)
Quarter: 2020Q3

REPORT INFORMATION
  Report Type: Report from Study
  Country: US (occurrence: US)
  Receive Date: 20200317
  Receipt Date: 20200806
  Transmission Date: 20201102
  Serious: Yes (Hospitalization, Other)
  Sender: FDA-Public Use
  Company Number: US-ACTELION-A-NJ2020-202992

PATIENT
  Age: 73 Year
  Sex: Female
  Weight: 74.83 kg

DRUGS (2)
  1. XARELTO [Concomitant]
     Active Substance: RIVAROXABAN
  2. OPSUMIT [Suspect]
     Active Substance: MACITENTAN
     Indication: PULMONARY ARTERIAL HYPERTENSION
     Dosage: 10 MG, QD
     Route: 048

REACTIONS (8)
  - Renal function test abnormal [Unknown]
  - Oedema [Unknown]
  - Knee operation [Unknown]
  - Hospitalisation [Unknown]
  - Fluid retention [Unknown]
  - Renal injury [Unknown]
  - Knee arthroplasty [Unknown]
  - Localised infection [Unknown]

NARRATIVE: CASE EVENT DATE: 20200228
